FAERS Safety Report 19742094 (Version 1)
Quarter: 2021Q3

REPORT INFORMATION
  Report Type: Spontaneous
  Country: DE (occurrence: DE)
  Receive Date: 20210824
  Receipt Date: 20210824
  Transmission Date: 20211014
  Serious: Yes (Other)
  Sender: FDA-Public Use
  Company Number: DE-PFIZER INC-2021866151

PATIENT
  Age: 67 Year
  Sex: Male

DRUGS (6)
  1. KEYTRUDA [Suspect]
     Active Substance: PEMBROLIZUMAB
     Dosage: UNK, 200 MG EVERY 3 WEEKS
     Dates: start: 20200617, end: 20210301
  2. INLYTA [Suspect]
     Active Substance: AXITINIB
     Dosage: 2X5 MG DAILY
     Dates: start: 2020, end: 202102
  3. KEYTRUDA [Suspect]
     Active Substance: PEMBROLIZUMAB
     Indication: RENAL CELL CARCINOMA
     Dosage: 200 MG EVERY 3 WEEKS
     Dates: start: 2020
  4. KEYTRUDA [Suspect]
     Active Substance: PEMBROLIZUMAB
     Dosage: 200 MG EVERY 3 WEEKS
     Dates: start: 20210414
  5. INLYTA [Suspect]
     Active Substance: AXITINIB
     Indication: METASTATIC RENAL CELL CARCINOMA
     Dosage: 2X5 MG DAILY
     Dates: start: 20200617, end: 20210301
  6. INLYTA [Suspect]
     Active Substance: AXITINIB
     Dosage: 2X5 MG DAILY
     Dates: start: 20210329

REACTIONS (7)
  - Abdominal tenderness [Recovered/Resolved]
  - General physical health deterioration [Recovered/Resolved]
  - Pelvic discomfort [Recovered/Resolved]
  - Dehydration [Recovered/Resolved]
  - Weight decreased [Recovered/Resolved]
  - Diarrhoea [Recovered/Resolved]
  - Immune-mediated enterocolitis [Recovered/Resolved]

NARRATIVE: CASE EVENT DATE: 202102
